FAERS Safety Report 8520947-4 (Version None)
Quarter: 2012Q3

REPORT INFORMATION
  Report Type: 
  Country: None (occurrence: None)
  Receive Date: 20120712
  Receipt Date: 20120712
  Transmission Date: 20120928
  Serious: Yes (Hospitalization)
  Sender: FDA-Public Use
  Company Number: None

PATIENT
  Age: 58 Year
  Sex: Male
  Weight: 68.0396 kg

DRUGS (6)
  1. RIBAVIRIN [Suspect]
     Indication: HEPATITIS C
     Dosage: 600MG TWICE A DAY BY MOUTH
     Route: 048
     Dates: start: 20120409, end: 20120530
  2. TRIAMCINOLONE [Concomitant]
  3. NEXIUM [Concomitant]
  4. PEG-INTRON RP [Concomitant]
  5. NEULASTA [Concomitant]
  6. ACETONIDE [Concomitant]

REACTIONS (13)
  - HYPOTENSION [None]
  - GASTRITIS [None]
  - IRRITABLE BOWEL SYNDROME [None]
  - WHITE BLOOD CELL COUNT DECREASED [None]
  - ANAL PRURITUS [None]
  - HYPOAESTHESIA [None]
  - DIZZINESS [None]
  - MYALGIA [None]
  - CHILLS [None]
  - AGEUSIA [None]
  - ANOSMIA [None]
  - MIGRAINE [None]
  - PAIN [None]
